FAERS Safety Report 6535923-0 (Version None)
Quarter: 2010Q1

REPORT INFORMATION
  Report Type: 
  Country: None (occurrence: None)
  Receive Date: 20100113
  Receipt Date: 20100111
  Transmission Date: 20100710
  Serious: Yes (Hospitalization)
  Sender: FDA-Public Use
  Company Number: A0812457A

PATIENT
  Sex: Female

DRUGS (5)
  1. SUMATRIPTAN SUCCINATE [Suspect]
     Indication: MIGRAINE
     Dosage: 4MG UNKNOWN
     Route: 058
     Dates: start: 20091001
  2. GSK AUTOINJECTOR [Suspect]
     Indication: MIGRAINE
     Dosage: 4MG UNKNOWN
     Route: 058
     Dates: start: 20070101
  3. SEROQUEL [Concomitant]
     Route: 065
  4. EFFEXOR [Concomitant]
     Route: 065
  5. PREMARIN [Concomitant]
     Route: 065

REACTIONS (5)
  - DEVICE MALFUNCTION [None]
  - EMOTIONAL DISORDER [None]
  - INCORRECT DOSE ADMINISTERED [None]
  - MEDICATION ERROR [None]
  - PRODUCT QUALITY ISSUE [None]
